FAERS Safety Report 7987645-7 (Version None)
Quarter: 2011Q4

REPORT INFORMATION
  Report Type: 
  Country: None (occurrence: None)
  Receive Date: 20111216
  Receipt Date: 20111212
  Transmission Date: 20120403
  Serious: Yes (Hospitalization)
  Sender: FDA-Public Use
  Company Number: US-BAYER-2011-103290

PATIENT
  Age: 73 Year
  Sex: Male
  Weight: 96.145 kg

DRUGS (34)
  1. CALCIUM D [Concomitant]
     Indication: HYPOCALCAEMIA
     Dosage: 2 TABLETS DAILY (500-400 MG UNIT)
     Route: 048
     Dates: start: 20080601
  2. ACETAMINOPHEN [Concomitant]
     Indication: PYREXIA
     Dosage: DAILY DOSE: 650 MG
     Route: 048
     Dates: start: 20101025, end: 20101025
  3. CIPROFLOXACIN HCL [Concomitant]
     Indication: MICTURITION URGENCY
  4. NAPROXEN [Concomitant]
     Indication: NECK PAIN
     Dosage: DAILY DOSE: 375 MG
     Route: 048
     Dates: start: 20110217, end: 20110217
  5. SORAFENIB (RAF KINASE INHIBITOR) [Suspect]
     Dosage: 600 MG DAILY (200 MG QD + 200 MG BID)
     Route: 048
     Dates: start: 20110922
  6. TESTOSTERONE [Concomitant]
     Indication: ORGANIC ERECTILE DYSFUNCTION
     Dosage: DAILY DOSE: 7 GM
     Route: 061
     Dates: start: 20090101
  7. COLACE [Concomitant]
     Indication: POST PROCEDURAL CONSTIPATION
     Dosage: DAILY DOSE: 100 MG
     Route: 048
     Dates: start: 20101022, end: 20101022
  8. CIPROFLOXACIN HCL [Concomitant]
     Indication: POLLAKIURIA
  9. CIPROFLOXACIN [Concomitant]
     Indication: DIVERTICULITIS
     Dosage: DAILY DOSE: 1000 MG
     Route: 048
     Dates: start: 20110317
  10. POTASSIUM PHOSPHATES [Concomitant]
     Indication: VITAMIN SUPPLEMENTATION
     Dosage: DAILY DOSE 1000MG
     Route: 048
     Dates: start: 20110509
  11. DOXAZOSIN MESYLATE [Concomitant]
     Indication: BENIGN PROSTATIC HYPERPLASIA
     Dosage: DAILY DOSE: 5 MG
     Route: 048
     Dates: start: 19940101
  12. LEVOTHYROXINE SODIUM [Concomitant]
     Indication: HYPOTHYROIDISM
     Dosage: DAILY DOSE: 150 MCG (ONE TABLET EVERY OTHER DAY)
     Route: 048
     Dates: start: 20070101
  13. MULTI-VITAMIN [Concomitant]
     Indication: VITAMIN SUPPLEMENTATION
     Dosage: UNK
     Route: 048
     Dates: start: 19710101
  14. METFORMIN HYDROCHLORIDE [Concomitant]
     Indication: DIABETES MELLITUS
     Dosage: DAILY DOSE: 500 MG
     Route: 048
     Dates: start: 20080101, end: 20100526
  15. VALIUM [Concomitant]
     Indication: CHEST PAIN
  16. IMODIUM [Concomitant]
     Indication: DIARRHOEA
     Dosage: DAILY DOSE: 1 MG
     Route: 048
     Dates: start: 20110228
  17. AUGMENTIN [Concomitant]
     Indication: TOOTH ABSCESS
  18. ASPIRIN [Concomitant]
     Indication: SUPPLEMENTATION THERAPY
     Dosage: DAILY DOSE: 81 MG
     Route: 048
     Dates: start: 20000101
  19. LEVOTHYROXINE SODIUM [Concomitant]
     Dosage: DAILY DOSE: 175 MCG (ONE TABLET EVERY OTHER DAY)
     Route: 048
     Dates: start: 20070101
  20. PRILOSEC [Concomitant]
     Indication: GASTROOESOPHAGEAL REFLUX DISEASE
     Dosage: UNK UNK, PRN
     Route: 048
     Dates: start: 20090101
  21. SAW PALMETTO [Concomitant]
     Indication: SUPPLEMENTATION THERAPY
     Dosage: DAILY DOSE: 1000 MG
     Route: 048
     Dates: start: 19950101
  22. FLAGYL [Concomitant]
     Indication: DIVERTICULITIS
     Dosage: DAILY DOSE: 750 MG
     Route: 048
     Dates: start: 20110317
  23. SORAFENIB (RAF KINASE INHIBITOR) [Suspect]
     Indication: THYROID CANCER METASTATIC
     Dosage: UNK
     Route: 048
     Dates: start: 20110210
  24. GINGER [Concomitant]
     Indication: NAUSEA
     Dosage: UNK
     Route: 048
     Dates: start: 20100630
  25. FLAGYL [Concomitant]
     Indication: ABDOMINAL PAIN
  26. METFORMIN HYDROCHLORIDE [Concomitant]
     Dosage: DAILY DOSE: 1000 MG
     Route: 048
     Dates: start: 20100527
  27. LOVAZA [Concomitant]
     Indication: VITAMIN SUPPLEMENTATION
     Dosage: DAILY DOSE: 1000 MG
     Route: 048
     Dates: start: 19800101
  28. CIPROFLOXACIN [Concomitant]
     Indication: ABDOMINAL PAIN
  29. DIOVAN HCT [Concomitant]
     Indication: HYPERTENSION
     Dosage: 160 MG-25MG
     Route: 048
     Dates: start: 19950101
  30. PLACEBO [Suspect]
     Indication: THYROID CANCER METASTATIC
     Dosage: UNK
     Route: 048
  31. CIPROFLOXACIN HCL [Concomitant]
     Indication: URINARY TRACT INFECTION
     Dosage: DAILY DOSE: 1000 MG
     Route: 048
     Dates: start: 20101117, end: 20110114
  32. NAPROXEN [Concomitant]
     Indication: CHEST PAIN
  33. VALIUM [Concomitant]
     Indication: NECK PAIN
     Dosage: DAILY DOSE: 5 MG
     Route: 048
     Dates: start: 20110221, end: 20110221
  34. AUGMENTIN [Concomitant]
     Indication: TOOTH IMPACTED
     Dosage: DAILY DOSE: 1750 MG
     Route: 048
     Dates: start: 20110315, end: 20110325

REACTIONS (1)
  - HYPOMAGNESAEMIA [None]
